FAERS Safety Report 16321612 (Version 1)
Quarter: 2019Q2

REPORT INFORMATION
  Report Type: Spontaneous
  Country: FR (occurrence: FR)
  Receive Date: 20190516
  Receipt Date: 20190516
  Transmission Date: 20190711
  Serious: Yes (Hospitalization)
  Sender: FDA-Public Use
  Company Number: FR-TEVA-2019-FR-1049490

PATIENT
  Age: 71 Year
  Sex: Female

DRUGS (10)
  1. CHLORHYDRATE DE TRAMADOL [Suspect]
     Active Substance: TRAMADOL HYDROCHLORIDE
     Indication: PAIN
     Dosage: 50 MG 1 TO 4 TIMES PER DAY
     Route: 048
     Dates: start: 20190309, end: 20190323
  2. BRILIQUE [Concomitant]
     Active Substance: TICAGRELOR
  3. GLICLAZIDE [Concomitant]
     Active Substance: GLICLAZIDE
  4. KARDEGIC [Concomitant]
     Active Substance: ASPIRIN DL-LYSINE
  5. MIOREL 4 MG, G?LULE [Suspect]
     Active Substance: THIOCOLCHICOSIDE
     Indication: MUSCLE TWITCHING
     Dosage: 8 MILLIGRAM DAILY;
     Route: 048
     Dates: start: 20190309, end: 20190323
  6. ESOMEPRAZOLE. [Concomitant]
     Active Substance: ESOMEPRAZOLE MAGNESIUM
  7. ATORVASTATINE [Concomitant]
     Active Substance: ATORVASTATIN
  8. BISOCE 2,5 MG, COMPRIM? PELLICUL? S?CABLE [Concomitant]
     Active Substance: BISOPROLOL FUMARATE
  9. PARACETAMOL [Suspect]
     Active Substance: ACETAMINOPHEN
     Indication: PAIN
     Dosage: NOT INFORMED
     Route: 065
     Dates: start: 20190309, end: 20190323
  10. ESCITALOPRAM [Concomitant]
     Active Substance: ESCITALOPRAM OXALATE

REACTIONS (2)
  - Hepatocellular injury [Recovered/Resolved]
  - Cholestasis [Recovering/Resolving]

NARRATIVE: CASE EVENT DATE: 20190323
